FAERS Safety Report 21770839 (Version 1)
Quarter: 2022Q4

REPORT INFORMATION
  Report Type: Spontaneous
  Country: IN (occurrence: IN)
  Receive Date: 20221223
  Receipt Date: 20221223
  Transmission Date: 20230112
  Serious: Yes (Other)
  Sender: FDA-Public Use
  Company Number: IN-CIPLA LTD.-2022IN07290

PATIENT
  Age: 30 Year
  Sex: Male

DRUGS (6)
  1. TENOFOVIR [Suspect]
     Active Substance: TENOFOVIR
     Indication: HIV infection
     Dosage: 300 MILLIGRAM
     Route: 065
  2. TENOFOVIR [Suspect]
     Active Substance: TENOFOVIR
     Indication: Antiretroviral therapy
  3. LAMIVUDINE [Suspect]
     Active Substance: LAMIVUDINE
     Indication: HIV infection
     Dosage: 300 MILLIGRAM
     Route: 065
  4. LAMIVUDINE [Suspect]
     Active Substance: LAMIVUDINE
     Indication: Antiretroviral therapy
  5. EFAVIRENZ [Suspect]
     Active Substance: EFAVIRENZ
     Indication: HIV infection
     Dosage: 600 MILLIGRAM
     Route: 065
  6. EFAVIRENZ [Suspect]
     Active Substance: EFAVIRENZ
     Indication: Antiretroviral therapy

REACTIONS (1)
  - Immune reconstitution inflammatory syndrome associated Kaposi^s sarcoma [Unknown]
